FAERS Safety Report 26052863 (Version 1)
Quarter: 2025Q4

REPORT INFORMATION
  Report Type: Spontaneous
  Country: JP (occurrence: JP)
  Receive Date: 20251117
  Receipt Date: 20251117
  Transmission Date: 20260117
  Serious: Yes (Hospitalization)
  Sender: MDD OPERATIONS
  Company Number: JP-ZAMBON-2025000545

PATIENT
  Age: 9 Decade
  Sex: Male

DRUGS (2)
  1. SAFINAMIDE MESYLATE [Suspect]
     Active Substance: SAFINAMIDE MESYLATE
     Indication: Parkinson^s disease
     Dosage: 50MG
     Route: 048
  2. SAFINAMIDE MESYLATE [Suspect]
     Active Substance: SAFINAMIDE MESYLATE
     Dosage: 100MG
     Route: 048

REACTIONS (1)
  - Hypoglycaemia [Recovered/Resolved]

NARRATIVE: CASE EVENT DATE: 20251008
